FAERS Safety Report 7007746-X (Version None)
Quarter: 2010Q3

REPORT INFORMATION
  Report Type: 
  Country: None (occurrence: None)
  Receive Date: 20100922
  Receipt Date: 20100913
  Transmission Date: 20110219
  Serious: Yes (Hospitalization, Other)
  Sender: FDA-Public Use
  Company Number: US-ASTRAZENECA-2010SE41346

PATIENT
  Age: 72 Year
  Sex: Female

DRUGS (10)
  1. ZOMIG [Suspect]
     Route: 048
  2. ZOMIG [Suspect]
     Route: 045
     Dates: start: 20100902
  3. NEXIUM [Concomitant]
     Route: 048
  4. COREG [Concomitant]
  5. TRAZODONE HCL [Concomitant]
  6. ATIVAN [Concomitant]
  7. BUSPAR [Concomitant]
  8. TRIMETHOPRIM [Concomitant]
     Indication: BLADDER DISORDER
  9. ATROVENT [Concomitant]
     Route: 055
  10. VITAMINS [Concomitant]

REACTIONS (9)
  - BODY HEIGHT DECREASED [None]
  - BREAST CANCER [None]
  - DISCOMFORT [None]
  - DRUG DOSE OMISSION [None]
  - DRUG INEFFECTIVE [None]
  - HEADACHE [None]
  - HIP FRACTURE [None]
  - MENTAL IMPAIRMENT [None]
  - PARAESTHESIA [None]
